FAERS Safety Report 8392578-0 (Version None)
Quarter: 2012Q2

REPORT INFORMATION
  Report Type: 
  Country: None (occurrence: None)
  Receive Date: 20120529
  Receipt Date: 20120514
  Transmission Date: 20120825
  Serious: Yes (Other)
  Sender: FDA-Public Use
  Company Number: US-JNJFOC-20120512760

PATIENT
  Sex: Female
  Weight: 88.45 kg

DRUGS (21)
  1. REMICADE [Suspect]
     Indication: RHEUMATOID ARTHRITIS
     Dosage: DOSE: 5 BOTTLES
     Route: 042
     Dates: start: 20120501
  2. TYLENOL [Suspect]
     Indication: PAIN
     Dosage: USED ON AND OFF
     Route: 048
  3. SIMVASTATIN [Concomitant]
     Indication: BLOOD CHOLESTEROL INCREASED
     Route: 048
  4. TRAMADOL HCL [Suspect]
     Indication: PAIN
     Dosage: DOSE: EVERY 4-6 HOURS ^USUALLY ONE IN THE MORNING^.
     Route: 048
     Dates: start: 20040101
  5. TYLENOL [Suspect]
     Indication: SLEEP DISORDER THERAPY
     Dosage: USED ON AND OFF
     Route: 048
  6. POTASSIUM CHLORIDE [Concomitant]
     Route: 048
     Dates: start: 20070101
  7. IMURAN [Concomitant]
     Indication: RHEUMATOID ARTHRITIS
     Route: 048
     Dates: start: 20090101
  8. TYLENOL PM [Concomitant]
     Indication: SLEEP DISORDER THERAPY
     Route: 048
  9. MACROBID [Concomitant]
     Indication: INFECTION PROPHYLAXIS
     Route: 048
     Dates: start: 20110101
  10. TRAMADOL HCL [Suspect]
     Indication: MUSCULOSKELETAL STIFFNESS
     Dosage: DOSE: EVERY 4-6 HOURS ^USUALLY ONE IN THE MORNING^.
     Route: 048
     Dates: start: 20040101
  11. ICAR [Concomitant]
     Indication: MINERAL SUPPLEMENTATION
     Dosage: DOSE: 100/250 MG
     Route: 048
     Dates: start: 20070101
  12. TYLENOL PM [Concomitant]
     Indication: PAIN
     Route: 048
  13. MELOXICAM [Concomitant]
     Indication: RHEUMATOID ARTHRITIS
     Route: 048
  14. HYDROCHLOROTHIAZIDE [Concomitant]
     Indication: FLUID RETENTION
     Route: 048
     Dates: start: 20060101
  15. METOPROLOL TARTRATE [Concomitant]
     Indication: BLOOD PRESSURE
     Route: 048
     Dates: start: 20100101
  16. METFORMIN HCL [Concomitant]
     Indication: DIABETES MELLITUS
     Route: 048
     Dates: start: 20020101
  17. BYETTA [Concomitant]
     Indication: DIABETES MELLITUS
     Route: 065
     Dates: start: 20080101
  18. ASPIRIN [Concomitant]
     Route: 048
  19. LANTUS [Concomitant]
     Indication: DIABETES MELLITUS
     Route: 058
     Dates: start: 20020101
  20. REMICADE [Suspect]
     Dosage: DOSE: 5 BOTTLES
     Route: 042
     Dates: start: 20090101, end: 20120223
  21. LOTREL [Concomitant]
     Indication: BLOOD PRESSURE
     Dosage: DOSE: 5/20 MG
     Route: 048

REACTIONS (7)
  - FATIGUE [None]
  - URINARY TRACT INFECTION [None]
  - SURGERY [None]
  - RESTLESS LEGS SYNDROME [None]
  - ARTHRALGIA [None]
  - MUSCLE SPASMS [None]
  - DYSPEPSIA [None]
